FAERS Safety Report 17562355 (Version 1)
Quarter: 2020Q1

REPORT INFORMATION
  Report Type: Spontaneous
  Country: US (occurrence: US)
  Receive Date: 20200319
  Receipt Date: 20200319
  Transmission Date: 20200409
  Serious: No
  Sender: FDA-Public Use
  Company Number: US-KALA PHARAMACEUTICALS-2019KLA00063

PATIENT
  Age: 81 Year
  Sex: Female
  Weight: 68.03 kg

DRUGS (2)
  1. INVELTYS [Suspect]
     Active Substance: LOTEPREDNOL ETABONATE
     Dosage: 1 DROP, 4X/DAY IN LEFT EYE
     Route: 047
     Dates: start: 20191125, end: 20191202
  2. ASPIRIN. [Concomitant]
     Active Substance: ASPIRIN

REACTIONS (3)
  - Inappropriate schedule of product administration [Recovered/Resolved]
  - Eye infection [Recovering/Resolving]
  - Foreign body in eye [Recovered/Resolved]

NARRATIVE: CASE EVENT DATE: 2019
